FAERS Safety Report 5738756-8 (Version None)
Quarter: 2008Q2

REPORT INFORMATION
  Report Type: 
  Country: None (occurrence: None)
  Receive Date: 20080515
  Receipt Date: 20080425
  Transmission Date: 20081010
  Serious: No
  Sender: FDA-Public Use
  Company Number: A0705572A

PATIENT
  Age: 66 Year
  Sex: Male

DRUGS (3)
  1. VERAMYST [Suspect]
     Indication: NASAL CONGESTION
     Dosage: 2SPR PER DAY
     Route: 045
  2. ALTACE [Concomitant]
  3. UROXATRAL [Concomitant]

REACTIONS (1)
  - EPISTAXIS [None]
